FAERS Safety Report 6504825-8 (Version None)
Quarter: 2009Q4

REPORT INFORMATION
  Report Type: 
  Country: None (occurrence: None)
  Receive Date: 20091218
  Receipt Date: 20091211
  Transmission Date: 20100525
  Serious: Yes (Hospitalization)
  Sender: FDA-Public Use
  Company Number: GB-ASTRAZENECA-2009SE31441

PATIENT
  Sex: Female
  Weight: 4 kg

DRUGS (2)
  1. QUETIAPINE FUMARATE [Suspect]
     Indication: PSYCHOTIC DISORDER
     Route: 064
  2. VENLAFAXINE [Concomitant]

REACTIONS (1)
  - PULMONARY ARTERY STENOSIS CONGENITAL [None]
